FAERS Safety Report 19901317 (Version 2)
Quarter: 2021Q4

REPORT INFORMATION
  Report Type: Spontaneous
  Country: US (occurrence: None)
  Receive Date: 20210930
  Receipt Date: 20211201
  Transmission Date: 20220303
  Serious: No
  Sender: FDA-Public Use
  Company Number: 2021A734165

PATIENT
  Age: 25186 Day
  Sex: Male

DRUGS (1)
  1. BYDUREON BCISE [Suspect]
     Active Substance: EXENATIDE
     Indication: Diabetes mellitus
     Route: 058

REACTIONS (4)
  - Weight decreased [Not Recovered/Not Resolved]
  - Drug dose omission by device [Not Recovered/Not Resolved]
  - Drug delivery system malfunction [Not Recovered/Not Resolved]
  - Device leakage [Not Recovered/Not Resolved]

NARRATIVE: CASE EVENT DATE: 20210919
